FAERS Safety Report 7017081-1 (Version None)
Quarter: 2010Q3

REPORT INFORMATION
  Report Type: 
  Country: None (occurrence: None)
  Receive Date: 20100928
  Receipt Date: 20100611
  Transmission Date: 20110219
  Serious: Yes (Hospitalization)
  Sender: FDA-Public Use
  Company Number: JP-RANBAXY-2010RR-33809

PATIENT
  Age: 14 Year
  Sex: Female
  Weight: 62 kg

DRUGS (1)
  1. PASETOCIN FINE GRANULES 10% [Suspect]
     Dosage: 1.5 G, DAILY

REACTIONS (1)
  - ENTEROCOLITIS HAEMORRHAGIC [None]
